FAERS Safety Report 8170364-4 (Version None)
Quarter: 2012Q1

REPORT INFORMATION
  Report Type: 
  Country: None (occurrence: None)
  Receive Date: 20120104
  Receipt Date: 20111117
  Transmission Date: 20120608
  Serious: No
  Sender: FDA-Public Use
  Company Number: 2011HGS-002830

PATIENT
  Age: 34 Year
  Sex: Female
  Weight: 44.4525 kg

DRUGS (14)
  1. PREDNISONE [Concomitant]
  2. PLAQUENIL (HYDROXYCHLOROQUINE SULFATE) (HYDROXYCHLOROQUINE SULFATE) [Concomitant]
  3. DIGOXIN [Concomitant]
  4. WARFARIN SODIUM [Concomitant]
  5. CHOLESTYRAMINE (COLESTYRAMINE) (COLESTYRAMINE) [Concomitant]
  6. VITAMIN D (ERGOCALCIFEROL) (ERGOCALCIFEROL) [Concomitant]
  7. FOLIC ACID [Concomitant]
  8. BENLYSTA [Suspect]
     Indication: SYSTEMIC LUPUS ERYTHEMATOSUS
     Dosage: 1 IN 28 D, INTRAVENOUS DRIP
     Route: 041
     Dates: start: 20110908
  9. METRONITAXOLE (METRONIDAZOLE) (METRONIDAZOLE) [Concomitant]
  10. CELLCEPT (MYCOPHENOLATE MOFETIL) (MYCOPHENOLATE MOFETIL) [Concomitant]
  11. ZOLOFT [Concomitant]
  12. VERAPAMIL [Concomitant]
  13. TOPOMAX (TOPIRAMATE) (TOPIRAMATE) [Concomitant]
  14. PENTOXIFYLOINE (PENTOXIFYLLINE) (PENTOXIFYLLINE) [Concomitant]

REACTIONS (3)
  - DIARRHOEA [None]
  - CHEST DISCOMFORT [None]
  - WEIGHT DECREASED [None]
